FAERS Safety Report 10467531 (Version 2)
Quarter: 2014Q3

REPORT INFORMATION
  Report Type: Report from Study
  Country: US (occurrence: US)
  Receive Date: 20140922
  Receipt Date: 20140922
  Transmission Date: 20150326
  Serious: Yes (Other)
  Sender: FDA-Public Use
  Company Number: US-SA-2014SA111969

PATIENT
  Sex: Female

DRUGS (2)
  1. AUBAGIO [Suspect]
     Active Substance: TERIFLUNOMIDE
     Indication: MULTIPLE SCLEROSIS
     Route: 048
     Dates: start: 20140625, end: 20140905
  2. REBIF [Concomitant]
     Active Substance: INTERFERON BETA-1A
     Dates: start: 2008, end: 2014

REACTIONS (7)
  - Erythema [Recovering/Resolving]
  - Rash [Recovering/Resolving]
  - Stevens-Johnson syndrome [Recovering/Resolving]
  - Skin disorder [Recovering/Resolving]
  - Pruritus [Recovering/Resolving]
  - Burning sensation [Unknown]
  - Scar [Recovering/Resolving]
